FAERS Safety Report 15823721 (Version 2)
Quarter: 2019Q3

REPORT INFORMATION
  Report Type: Report from Study
  Country: RO (occurrence: RO)
  Receive Date: 20190114
  Receipt Date: 20190829
  Transmission Date: 20191004
  Serious: Yes (Hospitalization, Other)
  Sender: FDA-Public Use
  Company Number: RO-009507513-1901ROM001996

PATIENT
  Age: 56 Year
  Sex: Female
  Weight: 84 kg

DRUGS (6)
  1. CONCOR [Concomitant]
     Active Substance: BISOPROLOL FUMARATE
     Indication: HYPERTENSION
  2. NORVASC [Concomitant]
     Active Substance: AMLODIPINE BESYLATE
     Indication: HYPERTENSION
     Dosage: 10 MILLIGRAM, QD
     Route: 048
  3. GRAZOPREVIR (+) ELBASVIR [Suspect]
     Active Substance: ELBASVIR\GRAZOPREVIR
     Indication: CHRONIC HEPATITIS C
     Dosage: 1 TABLET ONCE DAILY
     Route: 048
     Dates: start: 20181121, end: 20181128
  4. NOLITERAX (INDAPAMIDE (+) PERINDOPRIL ARGININE) [Concomitant]
     Indication: HYPERTENSION
     Dosage: 1 TABLET/DAY
     Route: 048
  5. ASPIRIN CARDIO [Concomitant]
     Active Substance: ASPIRIN
     Indication: HYPERTENSION
     Dosage: 100 MILLIGRAM, QD
     Route: 048
  6. TENAXUM [Concomitant]
     Active Substance: RILMENIDINE
     Indication: HYPERTENSION
     Dosage: 1 MILLIGRAM, QD
     Route: 048

REACTIONS (5)
  - Muscle spasms [Recovered/Resolved]
  - Atrial fibrillation [Not Recovered/Not Resolved]
  - Palpitations [Recovered/Resolved]
  - Ventricular extrasystoles [Recovered/Resolved]
  - Chest pain [Recovered/Resolved]

NARRATIVE: CASE EVENT DATE: 20181126
